FAERS Safety Report 20563407 (Version 2)
Quarter: 2022Q1

REPORT INFORMATION
  Report Type: Report from Study
  Country: DE (occurrence: DE)
  Receive Date: 20220308
  Receipt Date: 20220325
  Transmission Date: 20220423
  Serious: Yes (Other)
  Sender: FDA-Public Use
  Company Number: DE-CELLTRION INC.-2022DE001123

PATIENT

DRUGS (4)
  1. TRASTUZUMAB [Suspect]
     Active Substance: TRASTUZUMAB
     Indication: Breast cancer
     Dosage: DATE OF LAST DOSE PRIOR TO AE: 14/DEC/2021
     Route: 041
     Dates: start: 20211123
  2. PACLITAXEL [Suspect]
     Active Substance: PACLITAXEL
     Indication: Breast cancer
     Dosage: DATE OF LAST DOSE PRIOR TO AE: 28/DEC/2021, LAST DOSE PRIOR TO AE: 125 MG
     Route: 065
     Dates: start: 20211123
  3. PERTUZUMAB [Suspect]
     Active Substance: PERTUZUMAB
     Indication: Breast cancer
     Dosage: DATE OF LAST DOSE PRIOR TO AE: 14/DEC/2021
     Route: 065
     Dates: start: 20211123
  4. LIDOCAINE [Concomitant]
     Active Substance: LIDOCAINE
     Dosage: 1 GRAM
     Route: 048
     Dates: start: 20220104

REACTIONS (7)
  - Leukopenia [Recovering/Resolving]
  - Neutropenia [Recovered/Resolved]
  - Polyneuropathy [Not Recovered/Not Resolved]
  - Cough [Not Recovered/Not Resolved]
  - Mucosal inflammation [Not Recovered/Not Resolved]
  - Diarrhoea [Not Recovered/Not Resolved]
  - Overdose [Unknown]

NARRATIVE: CASE EVENT DATE: 20211214
